FAERS Safety Report 11745989 (Version 1)
Quarter: 2015Q4

REPORT INFORMATION
  Report Type: Spontaneous
  Country: US (occurrence: US)
  Receive Date: 20151117
  Receipt Date: 20151117
  Transmission Date: 20160304
  Serious: Yes (Hospitalization)
  Sender: FDA-Public Use
  Company Number: US-PFIZER INC-2015384434

PATIENT
  Sex: Male

DRUGS (1)
  1. DIFLUCAN [Suspect]
     Active Substance: FLUCONAZOLE
     Indication: RASH
     Dosage: UNK

REACTIONS (4)
  - Pyrexia [Unknown]
  - Rash generalised [Unknown]
  - Product use issue [Unknown]
  - Drug hypersensitivity [Unknown]
